FAERS Safety Report 7338237-4 (Version None)
Quarter: 2011Q1

REPORT INFORMATION
  Report Type: 
  Country: None (occurrence: None)
  Receive Date: 20110308
  Receipt Date: 20110223
  Transmission Date: 20110831
  Serious: Yes (Hospitalization)
  Sender: FDA-Public Use
  Company Number: PHHY2011TT15754

PATIENT
  Age: 46 Year
  Sex: Male

DRUGS (2)
  1. PREDNISOLONE [Suspect]
     Indication: AUTOIMMUNE THROMBOCYTOPENIA
     Dosage: 60 MG, QD
  2. INSULIN [Concomitant]

REACTIONS (8)
  - FALSE POSITIVE INVESTIGATION RESULT [None]
  - BACK PAIN [None]
  - OSTEOPOROSIS [None]
  - SPINAL OSTEOARTHRITIS [None]
  - NERVE ROOT LESION [None]
  - ABSCESS [None]
  - OSTEOPENIA [None]
  - DIABETIC HYPEROSMOLAR COMA [None]
